FAERS Safety Report 7559238-7 (Version None)
Quarter: 2011Q2

REPORT INFORMATION
  Report Type: 
  Country: None (occurrence: None)
  Receive Date: 20110621
  Receipt Date: 20110609
  Transmission Date: 20111010
  Serious: Yes (Death, Hospitalization, Other)
  Sender: FDA-Public Use
  Company Number: US-ELI_LILLY_AND_COMPANY-US201104004686

PATIENT
  Sex: Male

DRUGS (1)
  1. FORTEO [Suspect]
     Indication: OSTEOPOROSIS
     Dosage: 20 UG, QD
     Route: 058
     Dates: start: 20101228, end: 20110501

REACTIONS (8)
  - PNEUMONIA [None]
  - BLOOD TESTOSTERONE DECREASED [None]
  - INCONTINENCE [None]
  - BODY HEIGHT DECREASED [None]
  - MUSCULAR WEAKNESS [None]
  - LIVING IN RESIDENTIAL INSTITUTION [None]
  - ASTHENIA [None]
  - VASCULITIS [None]
